FAERS Safety Report 8518135-0 (Version None)
Quarter: 2012Q3

REPORT INFORMATION
  Report Type: 
  Country: None (occurrence: None)
  Receive Date: 20120718
  Receipt Date: 20120709
  Transmission Date: 20120928
  Serious: Yes (Hospitalization, Other)
  Sender: FDA-Public Use
  Company Number: US-ASTRAZENECA-2011SE72020

PATIENT
  Age: 43 Year
  Sex: Female
  Weight: 65.3 kg

DRUGS (8)
  1. IBUPROFEN [Concomitant]
  2. NEXIUM [Suspect]
     Route: 048
  3. PERCOCET [Concomitant]
     Indication: BREAKTHROUGH PAIN
     Dosage: FOUR TIMES A DAY, 10/325 MILLIGRAMS
  4. PROTONIX [Concomitant]
  5. EXCEDRIN (MIGRAINE) [Concomitant]
  6. ASPIRIN [Concomitant]
  7. NEXIUM [Suspect]
     Route: 048
  8. PHENERGAN HCL [Concomitant]
     Indication: NAUSEA
     Dosage: AS REQUIRED

REACTIONS (9)
  - GASTRIC ULCER HAEMORRHAGE [None]
  - GASTROINTESTINAL ULCER [None]
  - FATIGUE [None]
  - BACK PAIN [None]
  - OSTEOARTHRITIS [None]
  - ADVERSE EVENT [None]
  - ANAEMIA [None]
  - ASTHENIA [None]
  - MIGRAINE [None]
